FAERS Safety Report 5404378-1 (Version None)
Quarter: 2007Q3

REPORT INFORMATION
  Report Type: 
  Country: None (occurrence: None)
  Receive Date: 20070711
  Receipt Date: 20060925
  Transmission Date: 20080115
  Serious: Yes (Hospitalization, Other)
  Sender: FDA-Public Use
  Company Number: 239551

PATIENT
  Age: 56 Year
  Sex: Female
  Weight: 77.1 kg

DRUGS (30)
  1. ACTIVELLA [Suspect]
     Indication: HORMONE REPLACEMENT THERAPY
     Dosage: 1MG/ 0.5MG, ORAL
     Route: 048
     Dates: start: 20021203, end: 20030523
  2. ACTIVELLA [Suspect]
     Indication: MENOPAUSAL SYMPTOMS
     Dosage: 1MG/ 0.5MG, ORAL
     Route: 048
     Dates: start: 20021203, end: 20030523
  3. PREMARIN [Suspect]
     Indication: HORMONE REPLACEMENT THERAPY
     Dosage: 0.625 MG, ORAL; 0.9 MG, ORAL; 1.25 MG, ORAL; 0.625, ORAL
     Route: 048
     Dates: start: 19940801, end: 19950501
  4. PREMARIN [Suspect]
     Indication: MENOPAUSAL SYMPTOMS
     Dosage: 0.625 MG, ORAL; 0.9 MG, ORAL; 1.25 MG, ORAL; 0.625, ORAL
     Route: 048
     Dates: start: 19940801, end: 19950501
  5. PREMARIN [Suspect]
     Indication: HORMONE REPLACEMENT THERAPY
     Dosage: 0.625 MG, ORAL; 0.9 MG, ORAL; 1.25 MG, ORAL; 0.625, ORAL
     Route: 048
     Dates: start: 19950501, end: 19990401
  6. PREMARIN [Suspect]
     Indication: MENOPAUSAL SYMPTOMS
     Dosage: 0.625 MG, ORAL; 0.9 MG, ORAL; 1.25 MG, ORAL; 0.625, ORAL
     Route: 048
     Dates: start: 19950501, end: 19990401
  7. PREMARIN [Suspect]
     Indication: HORMONE REPLACEMENT THERAPY
     Dosage: 0.625 MG, ORAL; 0.9 MG, ORAL; 1.25 MG, ORAL; 0.625, ORAL
     Route: 048
     Dates: start: 19990401, end: 20010901
  8. PREMARIN [Suspect]
     Indication: MENOPAUSAL SYMPTOMS
     Dosage: 0.625 MG, ORAL; 0.9 MG, ORAL; 1.25 MG, ORAL; 0.625, ORAL
     Route: 048
     Dates: start: 19990401, end: 20010901
  9. PREMARIN [Suspect]
     Indication: HORMONE REPLACEMENT THERAPY
     Dosage: 0.625 MG, ORAL; 0.9 MG, ORAL; 1.25 MG, ORAL; 0.625, ORAL
     Route: 048
     Dates: start: 20011001, end: 20020901
  10. PREMARIN [Suspect]
     Indication: MENOPAUSAL SYMPTOMS
     Dosage: 0.625 MG, ORAL; 0.9 MG, ORAL; 1.25 MG, ORAL; 0.625, ORAL
     Route: 048
     Dates: start: 20011001, end: 20020901
  11. MEDROXYPROGESTERONE [Suspect]
     Indication: HORMONE REPLACEMENT THERAPY
     Dosage: 2.5 MG, 5 MG, ORAL
     Route: 048
     Dates: start: 19950801, end: 19960401
  12. MEDROXYPROGESTERONE [Suspect]
     Indication: MENOPAUSAL SYMPTOMS
     Dosage: 2.5 MG, 5 MG, ORAL
     Route: 048
     Dates: start: 19950801, end: 19960401
  13. MEDROXYPROGESTERONE [Suspect]
     Indication: HORMONE REPLACEMENT THERAPY
     Dosage: 2.5 MG, 5 MG, ORAL
     Route: 048
     Dates: start: 19990401, end: 20020901
  14. MEDROXYPROGESTERONE [Suspect]
     Indication: MENOPAUSAL SYMPTOMS
     Dosage: 2.5 MG, 5 MG, ORAL
     Route: 048
     Dates: start: 19990401, end: 20020901
  15. PREMPHASE (PREMARIN;CYCRIN 14/14) [Suspect]
     Indication: HORMONE REPLACEMENT THERAPY
     Dosage: 0.625/ 5.0 MG,
     Dates: start: 19960401, end: 19990301
  16. PREMPHASE (PREMARIN;CYCRIN 14/14) [Suspect]
     Indication: MENOPAUSAL SYMPTOMS
     Dosage: 0.625/ 5.0 MG,
     Dates: start: 19960401, end: 19990301
  17. PREMARIN [Suspect]
     Indication: HORMONE REPLACEMENT THERAPY
     Dosage: VAGINAL
     Route: 067
     Dates: start: 19980501, end: 19980101
  18. PREMARIN [Suspect]
     Indication: MENOPAUSAL SYMPTOMS
     Dosage: VAGINAL
     Route: 067
     Dates: start: 19980501, end: 19980101
  19. PREVACID [Concomitant]
  20. PRINIVIL [Concomitant]
  21. RANITIDINE [Concomitant]
  22. ASPIRIN [Concomitant]
  23. LISINOPRIL [Concomitant]
  24. PRAVACHOL [Concomitant]
  25. ULTRACET [Concomitant]
  26. LORAZEPAM [Concomitant]
  27. FOSAMAX [Concomitant]
  28. EFFEXOR XR [Concomitant]
  29. CRESTOR /01588601/ (ROSUVASTATIN) [Concomitant]
  30. MEGESTROL ACETATE [Concomitant]

REACTIONS (1)
  - BREAST CANCER [None]
